FAERS Safety Report 16839466 (Version 1)
Quarter: 2019Q3

REPORT INFORMATION
  Report Type: Spontaneous
  Country: US (occurrence: US)
  Receive Date: 20190731
  Receipt Date: 20190731
  Transmission Date: 20191005
  Serious: Yes (Hospitalization, Other)
  Sender: FDA-Public Use
  Company Number: None

PATIENT
  Age: 69 Year
  Sex: Male
  Weight: 59 kg

DRUGS (1)
  1. LISINOPRIL. [Suspect]
     Active Substance: LISINOPRIL
     Indication: HYPERTENSION
     Route: 048
     Dates: start: 20180312, end: 20190423

REACTIONS (5)
  - Blood creatinine increased [None]
  - Pharyngeal mass [None]
  - Hyperkalaemia [None]
  - Blood urea increased [None]
  - Metabolic acidosis [None]

NARRATIVE: CASE EVENT DATE: 20190415
